FAERS Safety Report 7690874-3 (Version None)
Quarter: 2011Q3

REPORT INFORMATION
  Report Type: 
  Country: None (occurrence: None)
  Receive Date: 20110818
  Receipt Date: 20110818
  Transmission Date: 20111222
  Serious: Yes (Hospitalization)
  Sender: FDA-Public Use
  Company Number: None

PATIENT
  Sex: Female
  Weight: 52.163 kg

DRUGS (2)
  1. IBUPROFEN [Concomitant]
     Route: 048
  2. RECLAST [Suspect]
     Indication: OSTEOPENIA
     Route: 041

REACTIONS (3)
  - MUSCULOSKELETAL CHEST PAIN [None]
  - MUSCLE DISORDER [None]
  - LOSS OF CONSCIOUSNESS [None]
